FAERS Safety Report 9669131 (Version 1)
Quarter: 2013Q4

REPORT INFORMATION
  Report Type: Spontaneous
  Country: AU (occurrence: AU)
  Receive Date: 20131105
  Receipt Date: 20131105
  Transmission Date: 20140711
  Serious: Yes (Other)
  Sender: FDA-Public Use
  Company Number: AU-JNJFOC-20131018296

PATIENT
  Age: 37 Year
  Sex: Male

DRUGS (1)
  1. STELARA [Suspect]
     Indication: PSORIASIS
     Route: 058
     Dates: start: 201011

REACTIONS (4)
  - Cellulitis [Unknown]
  - Pneumonia [Unknown]
  - Ankylosing spondylitis [Unknown]
  - Psoriasis [Unknown]
